FAERS Safety Report 9295130 (Version 1)
Quarter: 2013Q2

REPORT INFORMATION
  Report Type: Spontaneous
  Country: US (occurrence: US)
  Receive Date: 20130517
  Receipt Date: 20130517
  Transmission Date: 20140414
  Serious: No
  Sender: FDA-Public Use
  Company Number: US-PFIZER INC-2012051370

PATIENT
  Age: 48 Year
  Sex: Female
  Weight: 75 kg

DRUGS (22)
  1. CHANTIX [Suspect]
     Dosage: STARTER PACK, UNK
     Dates: start: 20080718, end: 20080815
  2. ESTRACE [Concomitant]
     Dosage: 1 MG, 1X/DAY
     Dates: start: 20080728
  3. PROMETHAZINE [Concomitant]
     Dosage: 25 MG, 4X/DAY, EVERY SIX HOURS
     Dates: start: 20080728
  4. ONDANSETRON [Concomitant]
     Dosage: 4 MG, AS NEEDED
     Dates: start: 20080728
  5. COMPAZINE [Concomitant]
     Dosage: 10 MG, AS NEEDED
     Dates: start: 20080728
  6. DARVOCET-N [Concomitant]
     Dosage: UNK
     Dates: start: 20080728
  7. CARAFATE [Concomitant]
     Dosage: UNK
     Dates: start: 20080728
  8. NORVASC [Concomitant]
     Dosage: 5 MG, 1X/DAY
     Dates: start: 20080728
  9. LIPITOR [Concomitant]
     Dosage: 40 MG, 1X/DAY
     Dates: start: 20080728
  10. ZETIA [Concomitant]
     Dosage: 10 MG, 1X/DAY, AT NIGHT
     Dates: start: 20080728
  11. HYZAAR [Concomitant]
     Dosage: 12.5/50 MG DAILY, UNK
     Dates: start: 20080728
  12. NEXIUM [Concomitant]
     Dosage: 40 MG, 1X/DAY
     Dates: start: 20080728
  13. TOPROL XL [Concomitant]
     Dosage: 50 MG, 1X/DAY
     Dates: start: 20080728
  14. ELMIRON [Concomitant]
     Dosage: 100 MG, 3X/DAY
     Dates: start: 20080728
  15. XANAX XR [Concomitant]
     Dosage: 1 MG, 4X/DAY
     Dates: start: 20080728
  16. XANAX [Concomitant]
     Indication: ANXIETY
     Dosage: 1 MG, 3X/DAY
     Dates: start: 20080728
  17. CIPRO [Concomitant]
     Dosage: UNK
     Dates: start: 20080728
  18. RED YEAST RICE [Concomitant]
     Dosage: 1200 MG, 1X/DAY
     Dates: start: 20080728
  19. LEVAQUIN [Concomitant]
     Dosage: UNK
     Dates: start: 20080728
  20. MOTRIN [Concomitant]
     Dosage: UNK
     Dates: start: 20080728
  21. CELEXA [Concomitant]
     Dosage: 40 MG, 1X/DAY
     Dates: start: 20080728
  22. ELAVIL [Concomitant]
     Dosage: 25 MG, 1X/DAY, AT NIGHT
     Dates: start: 20080728

REACTIONS (1)
  - Aggression [Unknown]
